FAERS Safety Report 11420677 (Version 2)
Quarter: 2015Q3

REPORT INFORMATION
  Report Type: Report from Study
  Country: US (occurrence: US)
  Receive Date: 20150826
  Receipt Date: 20150916
  Transmission Date: 20151125
  Serious: Yes (Death, Hospitalization)
  Sender: FDA-Public Use
  Company Number: US-ASTELLAS-2015US021881

PATIENT
  Sex: Female

DRUGS (5)
  1. VELCADE [Concomitant]
     Active Substance: BORTEZOMIB
     Indication: PRODUCT USED FOR UNKNOWN INDICATION
     Dosage: UNK UNK, UNKNOWN FREQ.
     Route: 065
  2. ERLOTINIB [Suspect]
     Active Substance: ERLOTINIB
     Indication: MALIGNANT NEOPLASM OF UTERINE ADNEXA
  3. TOPOTECAN [Concomitant]
     Active Substance: TOPOTECAN\TOPOTECAN HYDROCHLORIDE
     Indication: PRODUCT USED FOR UNKNOWN INDICATION
     Dosage: UNK UNK, UNKNOWN FREQ.
     Route: 065
  4. ERLOTINIB [Suspect]
     Active Substance: ERLOTINIB
     Indication: OVARIAN CANCER
     Route: 048
     Dates: start: 200311, end: 200401
  5. CAPECITABINE. [Suspect]
     Active Substance: CAPECITABINE
     Indication: OVARIAN CANCER
     Dosage: UNK, UNKNOWN FREQ.
     Route: 048
     Dates: start: 200311, end: 200401

REACTIONS (15)
  - Anxiety [Unknown]
  - Depression [Unknown]
  - Decreased appetite [Unknown]
  - Malaise [Unknown]
  - Chest pain [Unknown]
  - Weight decreased [Unknown]
  - Pleurodesis [Unknown]
  - Pleural effusion [Unknown]
  - Death [Fatal]
  - Pericardial effusion [Unknown]
  - Hyperhidrosis [Unknown]
  - Cough [Unknown]
  - Hypoaesthesia [Unknown]
  - Fatigue [Unknown]
  - Dyspnoea [Unknown]
